FAERS Safety Report 7110114-3 (Version None)
Quarter: 2010Q4

REPORT INFORMATION
  Report Type: 
  Country: None (occurrence: None)
  Receive Date: 20101118
  Receipt Date: 20101115
  Transmission Date: 20110411
  Serious: Yes (Death)
  Sender: FDA-Public Use
  Company Number: DE-SANOFI-AVENTIS-2010SA069418

PATIENT
  Age: 72 Year
  Sex: Male

DRUGS (1)
  1. JEVTANA KIT [Suspect]
     Dosage: BASED ON INTERNATIONAL PHARMACY
     Route: 041
     Dates: start: 20100101, end: 20100101

REACTIONS (1)
  - DEATH [None]
